FAERS Safety Report 4336332-5 (Version None)
Quarter: 2004Q2

REPORT INFORMATION
  Report Type: 
  Country: None (occurrence: None)
  Receive Date: 20040407
  Receipt Date: 20040326
  Transmission Date: 20050107
  Serious: Yes (Disabling)
  Sender: FDA-Public Use
  Company Number: 2003-BP-01629BP

PATIENT
  Age: 54 Year
  Sex: Male
  Weight: 93.18 kg

DRUGS (6)
  1. RITONAVIR [Suspect]
     Indication: HIV INFECTION
     Dosage: NR (NR), PO
     Route: 048
  2. VIRAMUNE [Suspect]
     Indication: HIV INFECTION
     Dosage: 400 MG (NR), PO
     Route: 048
     Dates: start: 20020821
  3. TRICOR [Concomitant]
  4. PRAVACHOL [Concomitant]
  5. TENOFOVIR [Suspect]
     Indication: HIV INFECTION
     Dosage: 300 MG (NR), PO
     Route: 048
     Dates: start: 20020821
  6. LAMIVUDINE (LAMIVUDINE) [Suspect]
     Indication: HIV INFECTION
     Dosage: 300 MG (NR), PO
     Route: 048
     Dates: start: 20020821

REACTIONS (2)
  - ARTHRALGIA [None]
  - ASEPTIC NECROSIS BONE [None]
